FAERS Safety Report 8047153-4 (Version None)
Quarter: 2012Q1

REPORT INFORMATION
  Report Type: 
  Country: None (occurrence: None)
  Receive Date: 20120116
  Receipt Date: 20120111
  Transmission Date: 20120608
  Serious: Yes (Death, Hospitalization, Other)
  Sender: FDA-Public Use
  Company Number: US-JNJFOC-20120104033

PATIENT
  Sex: Male
  Weight: 88.91 kg

DRUGS (17)
  1. RISPERDAL [Suspect]
     Indication: AGGRESSION
     Route: 048
     Dates: start: 20081230, end: 20090119
  2. ACETYLSALICYLIC ACID SRT [Concomitant]
     Route: 048
     Dates: end: 20090202
  3. M.V.I. [Concomitant]
     Route: 048
     Dates: end: 20090202
  4. CALCIUM [Concomitant]
     Route: 048
     Dates: end: 20090202
  5. FOSAMAX [Concomitant]
     Indication: BONE LOSS
     Route: 048
     Dates: end: 20090202
  6. ACETAMINOPHEN [Concomitant]
     Indication: PRODUCT USED FOR UNKNOWN INDICATION
     Route: 048
     Dates: end: 20090202
  7. FISH OIL [Concomitant]
     Route: 048
     Dates: end: 20090202
  8. NAMENDA [Concomitant]
     Indication: DEMENTIA
     Route: 048
     Dates: end: 20090202
  9. ZANTAC [Concomitant]
     Dates: end: 20090202
  10. VITAMIN D [Concomitant]
     Route: 048
     Dates: end: 20090202
  11. DOXAZOSIN MESYLATE [Concomitant]
     Indication: PROSTATIC SPECIFIC ANTIGEN
     Route: 048
     Dates: end: 20090202
  12. CALCIUM CITRATE [Concomitant]
     Indication: CONSTIPATION
     Dosage: 2 TEASPOONS
     Route: 048
     Dates: end: 20090202
  13. COLACE [Concomitant]
     Indication: CONSTIPATION
     Route: 048
     Dates: end: 20090202
  14. DOXYCYCLINE [Concomitant]
     Route: 048
     Dates: end: 20090202
  15. LUTEIN [Concomitant]
     Route: 048
     Dates: end: 20090202
  16. NORVASC [Concomitant]
     Indication: BLOOD PRESSURE
     Route: 048
     Dates: end: 20090202
  17. ARICEPT [Concomitant]
     Route: 048
     Dates: end: 20090202

REACTIONS (9)
  - HYPOPHAGIA [None]
  - HYPERSOMNIA [None]
  - DEHYDRATION [None]
  - ASPIRATION [None]
  - HYPOTENSION [None]
  - SEDATION [None]
  - LOSS OF CONSCIOUSNESS [None]
  - DEMENTIA WITH LEWY BODIES [None]
  - SOMNOLENCE [None]
